FAERS Safety Report 8586592-X (Version None)
Quarter: 2012Q3

REPORT INFORMATION
  Report Type: 
  Country: None (occurrence: None)
  Receive Date: 20120810
  Receipt Date: 20120803
  Transmission Date: 20120928
  Serious: Yes (Other)
  Sender: FDA-Public Use
  Company Number: US-JNJFOC-20120803976

PATIENT
  Sex: Male
  Weight: 74.39 kg

DRUGS (2)
  1. ARTANE [Concomitant]
     Indication: EXTRAPYRAMIDAL DISORDER
     Route: 048
  2. INVEGA SUSTENNA [Suspect]
     Indication: SCHIZOPHRENIA, PARANOID TYPE
     Route: 030
     Dates: start: 20120101

REACTIONS (5)
  - TARDIVE DYSKINESIA [None]
  - ERECTILE DYSFUNCTION [None]
  - WEIGHT INCREASED [None]
  - DYSPNOEA [None]
  - NIGHTMARE [None]
